FAERS Safety Report 4377617-6 (Version None)
Quarter: 2004Q2

REPORT INFORMATION
  Report Type: 
  Country: None (occurrence: None)
  Receive Date: 20040615
  Receipt Date: 20040603
  Transmission Date: 20050107
  Serious: Yes (Life-Threatening, Hospitalization)
  Sender: FDA-Public Use
  Company Number: 2004/00578

PATIENT
  Age: 50 Year
  Sex: Male

DRUGS (2)
  1. AMOXICILLIN AND CLAVULANATE POTASSIUM [Suspect]
     Indication: INFECTION PROPHYLAXIS
     Dosage: 1G PER DAY
     Route: 048
     Dates: start: 20040424, end: 20040424
  2. AMOXICILLIN [Concomitant]

REACTIONS (4)
  - CIRCULATORY COLLAPSE [None]
  - OEDEMA PERIPHERAL [None]
  - PRURITUS [None]
  - RHINITIS [None]
